FAERS Safety Report 15197118 (Version 1)
Quarter: 2018Q3

REPORT INFORMATION
  Report Type: Spontaneous
  Country: US (occurrence: US)
  Receive Date: 20180725
  Receipt Date: 20180725
  Transmission Date: 20181010
  Serious: No
  Sender: FDA-Public Use
  Company Number: US-ASTRAZENECA-2018SE83279

PATIENT

DRUGS (1)
  1. FASENRA [Suspect]
     Active Substance: BENRALIZUMAB
     Indication: ASTHMA
     Dosage: ONCE EVERY MONTH FOR THE FIRST 3 DOSES, THEN EVERY TWO MONTHS AFTER THAT
     Route: 058

REACTIONS (3)
  - Dizziness [Recovered/Resolved]
  - Dehydration [Recovered/Resolved]
  - Headache [Recovered/Resolved]
